FAERS Safety Report 8542102-4 (Version None)
Quarter: 2012Q3

REPORT INFORMATION
  Report Type: 
  Country: None (occurrence: None)
  Receive Date: 20120726
  Receipt Date: 20111019
  Transmission Date: 20120928
  Serious: No
  Sender: FDA-Public Use
  Company Number: US-ASTRAZENECA-2011SE63480

PATIENT
  Age: 49 Year
  Sex: Female

DRUGS (4)
  1. SEROQUEL [Suspect]
     Route: 048
  2. TRAZODONE HCL [Concomitant]
  3. LORAZEPAM [Concomitant]
  4. NEXIUM [Concomitant]

REACTIONS (4)
  - VOMITING [None]
  - ASTHMA [None]
  - INSOMNIA [None]
  - DRUG DOSE OMISSION [None]
